APPROVED DRUG PRODUCT: TOLAZAMIDE
Active Ingredient: TOLAZAMIDE
Strength: 250MG
Dosage Form/Route: TABLET;ORAL
Application: A070168 | Product #001
Applicant: USL PHARMA INC
Approved: Apr 2, 1986 | RLD: No | RS: No | Type: DISCN